FAERS Safety Report 4906045-7 (Version None)
Quarter: 2006Q1

REPORT INFORMATION
  Report Type: 
  Country: None (occurrence: None)
  Receive Date: 20060207
  Receipt Date: 20060207
  Transmission Date: 20060701
  Serious: Yes (Other)
  Sender: FDA-Public Use
  Company Number: None

PATIENT
  Age: 68 Year
  Sex: Female
  Weight: 68.0396 kg

DRUGS (1)
  1. CLINDAMYCIN [Suspect]
     Indication: SURGERY
     Dosage: 150 MG CAPSULE 3 TIMES DAILY PO
     Route: 048
     Dates: start: 20050822, end: 20050831

REACTIONS (2)
  - CLOSTRIDIUM COLITIS [None]
  - MALAISE [None]
